FAERS Safety Report 5201885-1 (Version None)
Quarter: 2007Q1

REPORT INFORMATION
  Report Type: 
  Country: None (occurrence: None)
  Receive Date: 20070104
  Receipt Date: 20061221
  Transmission Date: 20070707
  Serious: Yes (Life-Threatening, Hospitalization)
  Sender: FDA-Public Use
  Company Number: RENA-12057

PATIENT
  Age: 44 Year
  Sex: Female

DRUGS (9)
  1. RENAGEL [Suspect]
     Indication: HYPERPHOSPHATAEMIA
     Dosage: 2.4 G TID PO
     Route: 048
     Dates: start: 20051127, end: 20061001
  2. RENAGEL [Suspect]
     Indication: HYPERPHOSPHATAEMIA
     Dosage: 3.2 G TID PO
     Route: 048
     Dates: start: 20061001, end: 20061101
  3. RENAGEL [Suspect]
     Indication: HYPERPHOSPHATAEMIA
     Dosage: 4 G TID PO
     Route: 048
     Dates: start: 20061116, end: 20061122
  4. VASTAREL [Concomitant]
  5. NEORECORMON [Concomitant]
  6. ENALAPRIL MALEATE [Concomitant]
  7. KAYEXALATE [Concomitant]
  8. LAROSCORBINE [Concomitant]
  9. KEAL [Concomitant]

REACTIONS (19)
  - CARDIAC MURMUR [None]
  - CIRCULATORY COLLAPSE [None]
  - DIVERTICULITIS [None]
  - DRUG DOSE OMISSION [None]
  - DUODENAL ULCER [None]
  - EJECTION FRACTION DECREASED [None]
  - GASTRIC ULCER [None]
  - GASTROINTESTINAL HAEMORRHAGE [None]
  - HAEMODYNAMIC INSTABILITY [None]
  - HAEMOGLOBIN DECREASED [None]
  - HYPOTENSION [None]
  - INTENTIONAL OVERDOSE [None]
  - LOBAR PNEUMONIA [None]
  - OVERDOSE [None]
  - PNEUMONIA HAEMOPHILUS [None]
  - SHOCK HAEMORRHAGIC [None]
  - SINUS TACHYCARDIA [None]
  - VASCULAR CALCIFICATION [None]
  - WEIGHT INCREASED [None]
